FAERS Safety Report 19475131 (Version 2)
Quarter: 2021Q3

REPORT INFORMATION
  Report Type: Other
  Country: CN (occurrence: CN)
  Receive Date: 20210630
  Receipt Date: 20210817
  Transmission Date: 20211014
  Serious: Yes (Other)
  Sender: FDA-Public Use
  Company Number: CN-ROCHE-2855087

PATIENT

DRUGS (3)
  1. CISPLATIN. [Suspect]
     Active Substance: CISPLATIN
     Indication: NASOPHARYNGEAL CANCER
     Route: 042
  2. CAPECITABINE. [Suspect]
     Active Substance: CAPECITABINE
     Indication: NASOPHARYNGEAL CANCER
     Dosage: FROM DAY 1 TO 14 EVERY 3 WEEKS FOR 3 CYCLES
     Route: 048
  3. CISPLATIN. [Suspect]
     Active Substance: CISPLATIN
     Dosage: FOR CCRT
     Route: 065

REACTIONS (10)
  - Nausea [Unknown]
  - Neutropenia [Unknown]
  - Leukopenia [Unknown]
  - Mucosal inflammation [Unknown]
  - Vomiting [Unknown]
  - Palmar-plantar erythrodysaesthesia syndrome [Unknown]
  - Dermatitis [Unknown]
  - Electrolyte imbalance [Unknown]
  - Anaemia [Unknown]
  - Diarrhoea [Unknown]
